FAERS Safety Report 22024926 (Version 1)
Quarter: 2023Q1

REPORT INFORMATION
  Report Type: Spontaneous
  Country: US (occurrence: None)
  Receive Date: 20230223
  Receipt Date: 20230223
  Transmission Date: 20230417
  Serious: No
  Sender: FDA-Public Use
  Company Number: US-ROCHE-3076511

PATIENT
  Sex: Male

DRUGS (10)
  1. XOLAIR [Suspect]
     Active Substance: OMALIZUMAB
     Indication: Idiopathic urticaria
     Dosage: STRENGTH: 150 MG/ML
     Route: 058
     Dates: start: 20211130
  2. XOLAIR [Suspect]
     Active Substance: OMALIZUMAB
  3. XOLAIR [Suspect]
     Active Substance: OMALIZUMAB
  4. OXYCODONE [Concomitant]
     Active Substance: OXYCODONE
  5. LORAZEPAM [Concomitant]
     Active Substance: LORAZEPAM
  6. SPIRONOLACTONE [Concomitant]
     Active Substance: SPIRONOLACTONE
  7. HYDROXYZINE PAMOATE [Concomitant]
     Active Substance: HYDROXYZINE PAMOATE
  8. XYZAL [Concomitant]
     Active Substance: LEVOCETIRIZINE DIHYDROCHLORIDE
  9. LEVOTHYROXINE [Concomitant]
     Active Substance: LEVOTHYROXINE
  10. AZELASTINE [Concomitant]
     Active Substance: AZELASTINE

REACTIONS (1)
  - Blood thyroid stimulating hormone decreased [Unknown]
